FAERS Safety Report 9355962 (Version 7)
Quarter: 2014Q3

REPORT INFORMATION
  Report Type: Report from Study
  Country: FR (occurrence: FR)
  Receive Date: 20130619
  Receipt Date: 20140714
  Transmission Date: 20150326
  Serious: Yes (Hospitalization)
  Sender: FDA-Public Use
  Company Number: FR-ROCHE-1234126

PATIENT
  Age: 64 Year
  Sex: Female
  Weight: 72 kg

DRUGS (19)
  1. KARDEGIC [Concomitant]
     Active Substance: ASPIRIN LYSINE
     Route: 065
     Dates: start: 2009
  2. TRASTUZUMAB [Suspect]
     Active Substance: TRASTUZUMAB
     Indication: HER-2 POSITIVE BREAST CANCER
     Dosage: LAST DOSE PRIOR TO SAE: 15/MAY/2013
     Route: 058
     Dates: start: 20130313, end: 20130516
  3. TRASTUZUMAB [Suspect]
     Active Substance: TRASTUZUMAB
     Route: 058
     Dates: start: 20130612
  4. CHONDROSULF [Concomitant]
     Active Substance: CHONDROITIN SULFATE (CHICKEN)
     Route: 065
     Dates: start: 2003
  5. LEVOTHYROX [Concomitant]
     Active Substance: LEVOTHYROXINE
     Route: 065
     Dates: start: 2003
  6. DEXAMETHASONE. [Concomitant]
     Active Substance: DEXAMETHASONE
     Route: 065
     Dates: start: 20130313, end: 20130515
  7. LOPERAMIDE [Concomitant]
     Active Substance: LOPERAMIDE
     Dosage: TOTAL DAILY DOSE: UNKNOWN
     Route: 065
     Dates: start: 20130404, end: 20130612
  8. DOLIPRANE [Concomitant]
     Active Substance: ACETAMINOPHEN
     Dosage: TOTAL DAILY DOSE: 3G MAX / G/ 24H
     Route: 065
     Dates: start: 20130306
  9. INEXIUM [Concomitant]
     Active Substance: ESOMEPRAZOLE
     Route: 065
     Dates: start: 2009
  10. TAXOTERE [Concomitant]
     Active Substance: DOCETAXEL
     Route: 065
     Dates: start: 20130313, end: 20130515
  11. CONTRAMAL [Concomitant]
     Active Substance: TRAMADOL HYDROCHLORIDE
     Dosage: UNKNOWN
     Route: 065
     Dates: start: 20130306, end: 20130601
  12. FLECAINE [Concomitant]
     Active Substance: FLECAINIDE
     Route: 065
     Dates: start: 2009, end: 20130517
  13. SOLUPRED (FRANCE) [Concomitant]
     Active Substance: PREDNISOLONE
     Route: 065
     Dates: start: 20130313, end: 20130612
  14. PRIMPERAN [Concomitant]
     Active Substance: METOCLOPRAMIDE HYDROCHLORIDE
     Route: 065
     Dates: start: 20130313, end: 20130612
  15. ONDANSETRON [Concomitant]
     Active Substance: ONDANSETRON
     Route: 065
     Dates: start: 20130313, end: 20130515
  16. CYCLOPHOSPHAMIDE. [Concomitant]
     Active Substance: CYCLOPHOSPHAMIDE
     Route: 065
     Dates: start: 20130313, end: 20130515
  17. KENZEN [Concomitant]
     Active Substance: CANDESARTAN
     Route: 065
     Dates: start: 2009, end: 20140215
  18. IMOVANE [Concomitant]
     Active Substance: ZOPICLONE
     Route: 065
     Dates: start: 2009
  19. SODIUM BICARBONATE. [Concomitant]
     Active Substance: SODIUM BICARBONATE
     Route: 065
     Dates: start: 20130313, end: 20130612

REACTIONS (1)
  - Angina unstable [Recovered/Resolved]

NARRATIVE: CASE EVENT DATE: 20130516
